FAERS Safety Report 14183487 (Version 2)
Quarter: 2017Q4

REPORT INFORMATION
  Report Type: Spontaneous
  Country: CN (occurrence: CN)
  Receive Date: 20171113
  Receipt Date: 20171120
  Transmission Date: 20180321
  Serious: Yes (Life-Threatening, Other)
  Sender: FDA-Public Use
  Company Number: CN-BRACCO-2017CN05017

PATIENT
  Age: 44 Year
  Sex: Female

DRUGS (1)
  1. MULTIHANCE [Suspect]
     Active Substance: GADOBENATE DIMEGLUMINE
     Indication: NUCLEAR MAGNETIC RESONANCE IMAGING
     Dosage: 13 ML, SINGLE
     Route: 042
     Dates: start: 20171103, end: 20171103

REACTIONS (8)
  - Dyspnoea [Recovered/Resolved]
  - Increased upper airway secretion [Unknown]
  - Nausea [Unknown]
  - Pulse absent [Unknown]
  - Cyanosis [Unknown]
  - Discomfort [Unknown]
  - Coma [Not Recovered/Not Resolved]
  - Blood pressure immeasurable [Unknown]

NARRATIVE: CASE EVENT DATE: 20171103
